FAERS Safety Report 15894498 (Version 1)
Quarter: 2019Q1

REPORT INFORMATION
  Report Type: Report from Study
  Country: US (occurrence: US)
  Receive Date: 20190131
  Receipt Date: 20190131
  Transmission Date: 20190417
  Serious: Yes (Other)
  Sender: FDA-Public Use
  Company Number: US-SA-2019SA026695

PATIENT
  Age: 75 Year
  Sex: Male

DRUGS (1)
  1. DRONEDARONE [Suspect]
     Active Substance: DRONEDARONE
     Dosage: 400 MG, BID
     Route: 048

REACTIONS (3)
  - Hypersensitivity [Unknown]
  - Arthritis [Unknown]
  - Cerebrovascular accident [Unknown]
